FAERS Safety Report 24792772 (Version 1)
Quarter: 2024Q4

REPORT INFORMATION
  Report Type: Spontaneous
  Country: DE (occurrence: DE)
  Receive Date: 20241231
  Receipt Date: 20241231
  Transmission Date: 20250114
  Serious: Yes (Life-Threatening, Other)
  Sender: HIKMA
  Company Number: DE-MLMSERVICE-20171013-0924311-1

PATIENT
  Age: 47 Year
  Sex: Male

DRUGS (7)
  1. CISPLATIN [Suspect]
     Active Substance: CISPLATIN
     Indication: Lung squamous cell carcinoma stage III
     Dosage: UNK UNK, SINGLE
     Route: 065
     Dates: start: 201502
  2. DOCETAXEL [Suspect]
     Active Substance: DOCETAXEL
     Indication: Non-small cell lung cancer
     Dosage: UNKNOWN, CYCLE, 3RD AND 4TH LINE THERAPY
     Route: 065
  3. GEMCITABINE [Suspect]
     Active Substance: GEMCITABINE
     Indication: Non-small cell lung cancer
     Dosage: UNKNOWN
     Route: 065
  4. VINORELBINE [Suspect]
     Active Substance: VINORELBINE TARTRATE
     Indication: Non-small cell lung cancer
     Dosage: UNK UNK, SINGLE
     Route: 065
     Dates: start: 201502
  5. DARUNAVIR [Concomitant]
     Active Substance: DARUNAVIR
     Indication: HIV infection
     Dosage: UNKNOWN, ANTIRETROVIRAL THERAPY
     Route: 065
  6. DOLUTEGRAVIR [Concomitant]
     Active Substance: DOLUTEGRAVIR
     Indication: HIV infection
     Dosage: UNKNOWN, ANTIRETROVIRAL THERAPY
     Route: 065
  7. RITONAVIR [Concomitant]
     Active Substance: RITONAVIR
     Indication: HIV infection
     Dosage: UNKNOWN
     Route: 065

REACTIONS (2)
  - Neutropenic sepsis [Unknown]
  - Drug ineffective [Unknown]
